FAERS Safety Report 23256135 (Version 1)
Quarter: 2023Q4

REPORT INFORMATION
  Report Type: Spontaneous
  Country: JP (occurrence: JP)
  Receive Date: 20231204
  Receipt Date: 20231204
  Transmission Date: 20240109
  Serious: Yes (Death, Life-Threatening, Hospitalization, Other)
  Sender: FDA-Public Use
  Company Number: None

PATIENT
  Age: 70 Year
  Sex: Male

DRUGS (1)
  1. CELECOXIB [Suspect]
     Active Substance: CELECOXIB
     Indication: Arthralgia
     Dosage: UNK,  UNK

REACTIONS (7)
  - Vanishing bile duct syndrome [Fatal]
  - Jaundice [Fatal]
  - Malaise [Fatal]
  - Decreased appetite [Fatal]
  - Ascites [Fatal]
  - Hepatic failure [Fatal]
  - Drug-induced liver injury [Fatal]
